FAERS Safety Report 6908123-X (Version None)
Quarter: 2010Q3

REPORT INFORMATION
  Report Type: 
  Country: None (occurrence: None)
  Receive Date: 20100805
  Receipt Date: 20080110
  Transmission Date: 20110219
  Serious: Yes (Other)
  Sender: FDA-Public Use
  Company Number: US-PFIZER INC-2004002751

PATIENT
  Sex: Female
  Weight: 53.52 kg

DRUGS (3)
  1. NARDIL [Suspect]
     Indication: DEPRESSION
     Dosage: DAILY
     Route: 048
  2. METOPROLOL [Suspect]
     Indication: BLOOD PRESSURE
  3. LISINOPRIL [Suspect]
     Indication: BLOOD PRESSURE

REACTIONS (11)
  - BACK INJURY [None]
  - BALANCE DISORDER [None]
  - CONSTIPATION [None]
  - DEPRESSION [None]
  - DYSURIA [None]
  - ERUCTATION [None]
  - GASTRIC DISORDER [None]
  - HEADACHE [None]
  - HYPERTENSION [None]
  - THERAPEUTIC RESPONSE DECREASED [None]
  - URINARY HESITATION [None]
